FAERS Safety Report 7296154-2 (Version None)
Quarter: 2011Q1

REPORT INFORMATION
  Report Type: 
  Country: None (occurrence: None)
  Receive Date: 20110216
  Receipt Date: 20110210
  Transmission Date: 20110831
  Serious: Yes (Death)
  Sender: FDA-Public Use
  Company Number: JP-ROCHE-759499

PATIENT
  Age: 9 Year
  Sex: Male

DRUGS (4)
  1. TAMIFLU [Suspect]
     Indication: INFLUENZA
     Dosage: DOSAGE IS UNCERTAIN
     Route: 048
     Dates: start: 20110112, end: 20110114
  2. SELENICA-R [Concomitant]
     Route: 048
  3. DEPAKENE [Concomitant]
     Route: 048
  4. LAXOBERON [Concomitant]
     Route: 048

REACTIONS (1)
  - CARDIO-RESPIRATORY ARREST [None]
